FAERS Safety Report 16527002 (Version 1)
Quarter: 2019Q3

REPORT INFORMATION
  Report Type: Report from Study
  Country: IN (occurrence: IN)
  Receive Date: 20190703
  Receipt Date: 20190703
  Transmission Date: 20191004
  Serious: Yes (Hospitalization)
  Sender: FDA-Public Use
  Company Number: IN-B. BRAUN MEDICAL INC.-2070299

PATIENT
  Age: 88 Year
  Sex: Male

DRUGS (3)
  1. CEFTRIAXONE FOR INJECTION AND DEXTROSE INJECTION 0264-3153-11 (NDA 050 [Suspect]
     Active Substance: CEFTRIAXONE SODIUM
     Route: 042
  2. TOPICAL STEROIDS [Concomitant]
     Active Substance: UNSPECIFIED INGREDIENT
     Route: 061
  3. EMOLLIENTS [Concomitant]
     Active Substance: EMOLLIENTS
     Route: 061

REACTIONS (1)
  - Aplastic anaemia [Recovering/Resolving]
